FAERS Safety Report 20602428 (Version 1)
Quarter: 2022Q1

REPORT INFORMATION
  Report Type: Spontaneous
  Country: US (occurrence: None)
  Receive Date: 20220316
  Receipt Date: 20220316
  Transmission Date: 20220423
  Serious: Yes (Life-Threatening, Hospitalization, Disabling)
  Sender: FDA-Public Use
  Company Number: None

PATIENT
  Age: 49 Year
  Sex: Female

DRUGS (1)
  1. SYNTHROID [Suspect]
     Active Substance: LEVOTHYROXINE SODIUM
     Indication: Hypothyroidism
     Dosage: OTHER QUANTITY : 1 TABLET(S);?
     Route: 048

REACTIONS (9)
  - Hypokalaemia [None]
  - Leiomyosarcoma [None]
  - Uterine cancer [None]
  - Myomectomy [None]
  - Varicose vein [None]
  - Hysterectomy [None]
  - Myomectomy [None]
  - Anaemia [None]
  - Iron deficiency [None]

NARRATIVE: CASE EVENT DATE: 20201222
